FAERS Safety Report 25953783 (Version 2)
Quarter: 2025Q4

REPORT INFORMATION
  Report Type: Report from Study
  Country: US (occurrence: US)
  Receive Date: 20251023
  Receipt Date: 20251028
  Transmission Date: 20260117
  Serious: Yes (Other)
  Sender: ALEXION PHARMACEUTICALS
  Company Number: US-ASTRAZENECA-202510NAM017409US

PATIENT
  Age: 50 Year
  Sex: Female

DRUGS (1)
  1. STRENSIQ [Suspect]
     Active Substance: ASFOTASE ALFA
     Indication: Phosphorus metabolism disorder
     Dosage: 2 MILLIGRAM/KILOGRAM, Q3W
     Route: 065

REACTIONS (13)
  - Lipodystrophy acquired [Unknown]
  - Cataract cortical [Unknown]
  - Neuropathy peripheral [Unknown]
  - Deafness [Unknown]
  - Pain in extremity [Unknown]
  - Headache [Unknown]
  - Conjunctival deposit [Unknown]
  - Asthenia [Unknown]
  - Back pain [Unknown]
  - Pain [Unknown]
  - Muscular weakness [Unknown]
  - Anxiety [Unknown]
  - Tinnitus [Unknown]
